FAERS Safety Report 4644930-4 (Version None)
Quarter: 2005Q2

REPORT INFORMATION
  Report Type: 
  Country: None (occurrence: None)
  Receive Date: 20050425
  Receipt Date: 20050408
  Transmission Date: 20051028
  Serious: Yes (Death)
  Sender: FDA-Public Use
  Company Number: 2005AL001381

PATIENT
  Age: 9 Year
  Sex: Male

DRUGS (1)
  1. CAPITAL AND CODEINE [Suspect]
     Indication: PHARYNGOLARYNGEAL PAIN
     Dosage: 15 ML; X1; PO
     Route: 048
     Dates: start: 20020808, end: 20020808

REACTIONS (9)
  - ACCIDENTAL DEATH [None]
  - ANALGESIC DRUG LEVEL ABOVE THERAPEUTIC [None]
  - ASPHYXIA [None]
  - HAEMORRHAGE [None]
  - LOSS OF CONSCIOUSNESS [None]
  - OVERDOSE [None]
  - PULMONARY OEDEMA [None]
  - PULSE ABSENT [None]
  - RESPIRATORY ARREST [None]
